FAERS Safety Report 4811785-4 (Version None)
Quarter: 2005Q4

REPORT INFORMATION
  Report Type: 
  Country: None (occurrence: None)
  Receive Date: 20051027
  Receipt Date: 20051027
  Transmission Date: 20060501
  Serious: Yes (Hospitalization)
  Sender: FDA-Public Use
  Company Number: None

PATIENT
  Age: 72 Year
  Sex: Male
  Weight: 115.2 kg

DRUGS (11)
  1. SIMVASTATIN [Suspect]
     Indication: HYPERLIPIDAEMIA
     Dosage: 20MG,20MG DAI, ORAL
     Route: 048
     Dates: start: 20040228
  2. CAPTOPRIL [Concomitant]
  3. ROSIGLITAZONE MALEATE [Concomitant]
  4. METFORMIN HCL [Concomitant]
  5. SIMVASTATIN [Concomitant]
  6. GLYBURIDE [Concomitant]
  7. SYNTHROID [Concomitant]
  8. LANOXIN [Concomitant]
  9. GEMFIBROZIL [Concomitant]
  10. ROSIGLITAZONE MALEATE [Concomitant]
  11. RABEPRAZOLE NA [Concomitant]

REACTIONS (1)
  - PANCREATITIS [None]
